FAERS Safety Report 9339001 (Version 1)
Quarter: 2013Q2

REPORT INFORMATION
  Report Type: Spontaneous
  Country: KE (occurrence: KE)
  Receive Date: 20130610
  Receipt Date: 20130610
  Transmission Date: 20140414
  Serious: Yes (Death, Other)
  Sender: FDA-Public Use
  Company Number: KE-ELI_LILLY_AND_COMPANY-KE201306000410

PATIENT
  Sex: 0

DRUGS (1)
  1. HUMALOG 50% LISPRO, 50% NPL [Suspect]
     Dosage: UNK, UNKNOWN
     Route: 064

REACTIONS (2)
  - Foetal death [Fatal]
  - Foetal exposure during pregnancy [Unknown]
